FAERS Safety Report 9211799 (Version 3)
Quarter: 2014Q2

REPORT INFORMATION
  Report Type: Spontaneous
  Country: US (occurrence: US)
  Receive Date: 20130404
  Receipt Date: 20140404
  Transmission Date: 20141212
  Serious: Yes (Hospitalization)
  Sender: FDA-Public Use
  Company Number: US-B.I. PHARMACEUTICALS,INC./RIDGEFIELD-2013-BI-09112BP

PATIENT
  Sex: Female
  Weight: 77.11 kg

DRUGS (21)
  1. PRADAXA [Suspect]
     Indication: ATRIAL FIBRILLATION
  2. SYNTHROID [Concomitant]
     Dosage: 100 MCG
     Route: 065
     Dates: start: 1973
  3. LASIX [Concomitant]
     Dosage: 20 MG
     Route: 065
  4. COREG [Concomitant]
     Dosage: 50 MG
     Route: 048
  5. GABAPENTIN [Concomitant]
     Dosage: 2400 MG
     Route: 065
  6. LORAZEPAM [Concomitant]
     Dosage: 1 MG
     Route: 065
  7. PRILOSEC [Concomitant]
     Dosage: 1 MG
     Route: 065
  8. CARDIZEM [Concomitant]
     Dosage: 180 MG
     Route: 065
  9. FLEXERIL [Concomitant]
     Route: 065
  10. AMIODARONE [Concomitant]
     Dosage: 200 MG
     Route: 065
  11. TYLENOL [Concomitant]
     Route: 065
  12. FISH OIL [Concomitant]
     Route: 065
  13. GLUCOSAMINE [Concomitant]
     Route: 065
  14. FAXINE [Concomitant]
     Route: 065
  15. FLONASE [Concomitant]
     Route: 065
  16. MULTIVITAMIN [Concomitant]
     Route: 065
  17. MOTION SICKNESS PILL [Concomitant]
     Route: 065
  18. LORATADINE [Concomitant]
     Route: 065
  19. BENADRYL [Concomitant]
     Route: 065
  20. FUROSEMIDE [Concomitant]
     Route: 065
     Dates: start: 2003
  21. PRADAXA [Suspect]
     Indication: ANTICOAGULANT THERAPY
     Dosage: 300 MG
     Route: 048
     Dates: start: 20110311, end: 20110329

REACTIONS (2)
  - Gastrointestinal haemorrhage [Unknown]
  - Anaemia [Unknown]
